FAERS Safety Report 5326294-6 (Version None)
Quarter: 2007Q2

REPORT INFORMATION
  Report Type: 
  Country: None (occurrence: None)
  Receive Date: 20070514
  Receipt Date: 20070514
  Transmission Date: 20071010
  Serious: Yes (Hospitalization)
  Sender: FDA-Public Use
  Company Number: None

PATIENT
  Age: 63 Year
  Sex: Male
  Weight: 84.369 kg

DRUGS (1)
  1. NAPROSYN [Suspect]
     Indication: SCIATICA
     Dosage: 500MG BID PO  (DURATION: SEVERAL MONTHS)
     Route: 048

REACTIONS (3)
  - DIVERTICULUM [None]
  - GASTROINTESTINAL HAEMORRHAGE [None]
  - GASTROINTESTINAL ULCER [None]
